FAERS Safety Report 19246195 (Version 1)
Quarter: 2021Q2

REPORT INFORMATION
  Report Type: Spontaneous
  Country: US (occurrence: US)
  Receive Date: 20210511
  Receipt Date: 20210511
  Transmission Date: 20210717
  Serious: Yes (Hospitalization)
  Sender: FDA-Public Use
  Company Number: None

PATIENT
  Age: 13 Year
  Sex: Female

DRUGS (10)
  1. DIURIL [Concomitant]
     Active Substance: CHLOROTHIAZIDE
  2. FAMOTIDINE. [Concomitant]
     Active Substance: FAMOTIDINE
  3. CALCIUM CARBONATE. [Concomitant]
     Active Substance: CALCIUM CARBONATE
  4. CUVPOSA [Concomitant]
     Active Substance: GLYCOPYRROLATE
  5. TOBRAMYCIN, 300 MG [Suspect]
     Active Substance: TOBRAMYCIN
     Route: 055
     Dates: start: 20190718
  6. BUDESONIDE?? [Concomitant]
  7. LEVETIRACETAM. [Concomitant]
     Active Substance: LEVETIRACETAM
  8. OLOPATADINE. [Concomitant]
     Active Substance: OLOPATADINE
  9. LEVOTHYROXINE. [Concomitant]
     Active Substance: LEVOTHYROXINE
  10. BISACODYL. [Concomitant]
     Active Substance: BISACODYL

REACTIONS (1)
  - Cough [None]

NARRATIVE: CASE EVENT DATE: 20210503
